FAERS Safety Report 7551310-0 (Version None)
Quarter: 2011Q2

REPORT INFORMATION
  Report Type: 
  Country: None (occurrence: None)
  Receive Date: 20110616
  Receipt Date: 20110610
  Transmission Date: 20111010
  Serious: Yes (Other)
  Sender: FDA-Public Use
  Company Number: CA-PFIZER INC-2011128498

PATIENT
  Age: 57 Year
  Sex: Male

DRUGS (2)
  1. XALATAN [Suspect]
     Indication: GLAUCOMA
     Dosage: 1 DROP EACH EYE, 1X/DAY
     Route: 047
     Dates: start: 20100901
  2. NEXIUM [Concomitant]
     Indication: GASTROOESOPHAGEAL REFLUX DISEASE
     Dosage: 40 MG, 1X/DAY AM
     Dates: start: 20090601

REACTIONS (4)
  - IMMUNE SYSTEM DISORDER [None]
  - DIARRHOEA [None]
  - IRON DEFICIENCY [None]
  - INFLUENZA [None]
